FAERS Safety Report 17042724 (Version 2)
Quarter: 2019Q4

REPORT INFORMATION
  Report Type: Report from Study
  Country: DE (occurrence: DE)
  Receive Date: 20191118
  Receipt Date: 20191126
  Transmission Date: 20200122
  Serious: Yes (Other)
  Sender: FDA-Public Use
  Company Number: PHHY2016DE163318

PATIENT
  Age: 45 Year
  Sex: Female

DRUGS (5)
  1. FAMPYRA [Concomitant]
     Active Substance: DALFAMPRIDINE
     Indication: MULTIPLE SCLEROSIS
     Dosage: 10 OT, UNK
     Route: 065
     Dates: start: 20111024
  2. AMITRIPTYLINE [Concomitant]
     Active Substance: AMITRIPTYLINE
     Indication: DEPRESSION
     Dosage: 25 OT, UNK
     Route: 065
     Dates: start: 20070124
  3. METOPROLOL. [Concomitant]
     Active Substance: METOPROLOL
     Indication: TACHYCARDIA
     Dosage: 100 MG, UNK
     Route: 065
  4. GILENYA [Suspect]
     Active Substance: FINGOLIMOD HYDROCHLORIDE
     Indication: MULTIPLE SCLEROSIS
     Dosage: 0.5 MG, QD
     Route: 048
     Dates: start: 20160218
  5. SOLVEX [Concomitant]
     Active Substance: BENZOIC ACID\CHLOROTHYMOL\SALICYLIC ACID\THYMOL OR BROMHEXINE HYDROCHLORIDE OR REBOXETINE MESYLATE
     Indication: DEPRESSION
     Dosage: 4 MG, UNK
     Route: 065
     Dates: start: 20060613

REACTIONS (4)
  - Lymphopenia [Recovering/Resolving]
  - Fatigue [Recovered/Resolved]
  - Lymphopenia [Recovered/Resolved]
  - Lymphopenia [Recovered/Resolved]

NARRATIVE: CASE EVENT DATE: 20161117
